FAERS Safety Report 6297999-8 (Version None)
Quarter: 2009Q3

REPORT INFORMATION
  Report Type: 
  Country: None (occurrence: None)
  Receive Date: 20090805
  Receipt Date: 20090729
  Transmission Date: 20100115
  Serious: Yes (Other)
  Sender: FDA-Public Use
  Company Number: B0587193A

PATIENT

DRUGS (1)
  1. LAMICTAL [Suspect]
     Indication: DRUG USE FOR UNKNOWN INDICATION
     Dosage: 150MG PER DAY
     Dates: start: 20040101

REACTIONS (3)
  - ANAEMIA NEONATAL [None]
  - APLASTIC ANAEMIA [None]
  - DRUG EXPOSURE DURING PREGNANCY [None]
